FAERS Safety Report 5362764-2 (Version None)
Quarter: 2007Q2

REPORT INFORMATION
  Report Type: 
  Country: None (occurrence: None)
  Receive Date: 20070612
  Receipt Date: 20070529
  Transmission Date: 20071010
  Serious: Yes (Other)
  Sender: FDA-Public Use
  Company Number: 2007RR-07854

PATIENT
  Age: 6 Year

DRUGS (2)
  1. ACETAMINOPHEN [Suspect]
     Dosage: 250 MG
  2. SC FILGRASTIN(FILGRASTIM) [Suspect]
     Indication: HAEMATOPOIETIC STEM CELL MOBILISATION
     Dosage: 10 UG/KG, QD

REACTIONS (3)
  - BONE PAIN [None]
  - RHABDOMYOLYSIS [None]
  - VOMITING [None]
